FAERS Safety Report 6283661-4 (Version None)
Quarter: 2009Q3

REPORT INFORMATION
  Report Type: 
  Country: None (occurrence: None)
  Receive Date: 20090724
  Receipt Date: 20090717
  Transmission Date: 20100115
  Serious: Yes (Hospitalization)
  Sender: FDA-Public Use
  Company Number: DE-GENENTECH-287165

PATIENT
  Sex: Female
  Weight: 68.5 kg

DRUGS (13)
  1. BLINDED ANTI-CD40 [Suspect]
     Indication: DIFFUSE LARGE B-CELL LYMPHOMA
     Dosage: 2 MG/KG, X1
     Route: 042
     Dates: start: 20090603
  2. BLINDED PLACEBO [Suspect]
     Indication: DIFFUSE LARGE B-CELL LYMPHOMA
     Dosage: 2 MG/KG, X1
     Route: 042
     Dates: start: 20090603
  3. BLINDED ANTI-CD40 [Suspect]
     Dosage: 4 MG/KG, X1
     Route: 042
     Dates: start: 20090607, end: 20090607
  4. BLINDED PLACEBO [Suspect]
     Dosage: 4 MG/KG, X1
     Route: 042
     Dates: start: 20090607, end: 20090607
  5. BLINDED ANTI-CD40 [Suspect]
     Dosage: 8 MG/KG, 1/WEEK
     Route: 042
     Dates: start: 20090612
  6. BLINDED PLACEBO [Suspect]
     Dosage: 8 MG/KG, 1/WEEK
     Route: 042
     Dates: start: 20090612
  7. RITUXAN [Suspect]
     Indication: DIFFUSE LARGE B-CELL LYMPHOMA
     Dosage: 375 MG/M2, Q3W
     Route: 042
     Dates: start: 20090602
  8. ETOPOSIDE [Suspect]
     Indication: DIFFUSE LARGE B-CELL LYMPHOMA
     Dosage: 100 MG/M2, Q3W
     Route: 042
     Dates: start: 20090604, end: 20090625
  9. ETOPOSIDE [Suspect]
     Dosage: 100 MG/M2, Q3W
     Route: 042
     Dates: start: 20090605, end: 20090626
  10. ETOPOSIDE [Suspect]
     Dosage: 100 MG/M2, Q3W
     Route: 042
     Dates: start: 20090606
  11. CARBOPLATIN [Suspect]
     Indication: DIFFUSE LARGE B-CELL LYMPHOMA
     Dosage: 5 MG/ML, Q3W
     Route: 042
     Dates: start: 20090605
  12. IFOSFAMIDE [Suspect]
     Indication: DIFFUSE LARGE B-CELL LYMPHOMA
     Dosage: 5 G/M2, Q3W
     Route: 042
     Dates: start: 20090606
  13. METOHEXAL [Concomitant]
     Indication: DRUG USE FOR UNKNOWN INDICATION
     Dosage: UNK
     Dates: start: 20090615

REACTIONS (1)
  - FEBRILE NEUTROPENIA [None]
